FAERS Safety Report 7212712-5 (Version None)
Quarter: 2010Q4

REPORT INFORMATION
  Report Type: 
  Country: None (occurrence: None)
  Receive Date: 20101227
  Receipt Date: 20101213
  Transmission Date: 20110411
  Serious: Yes (Death)
  Sender: FDA-Public Use
  Company Number: 08-226

PATIENT
  Age: 46 Year
  Sex: Male

DRUGS (1)
  1. FAZACLO ODT [Suspect]
     Indication: SCHIZOPHRENIA, PARANOID TYPE
     Dosage: 700 MG DAILY PO
     Route: 048
     Dates: start: 20080718, end: 20080912

REACTIONS (3)
  - FRACTURE [None]
  - RESPIRATORY FAILURE [None]
  - SPINAL DISORDER [None]
